FAERS Safety Report 19243756 (Version 3)
Quarter: 2021Q2

REPORT INFORMATION
  Report Type: Spontaneous
  Country: US (occurrence: US)
  Receive Date: 20210511
  Receipt Date: 20210608
  Transmission Date: 20210717
  Serious: Yes (Other)
  Sender: FDA-Public Use
  Company Number: US-AUROBINDO-AUR-APL-2021-018771

PATIENT
  Sex: Female

DRUGS (2)
  1. KENALOG [Suspect]
     Active Substance: TRIAMCINOLONE ACETONIDE
     Indication: PAIN
     Dosage: UNK
     Route: 065
  2. LIDOCAINE INJECTION [Suspect]
     Active Substance: LIDOCAINE
     Indication: PAIN
     Dosage: 5 MILLILITER
     Route: 065

REACTIONS (2)
  - Product use in unapproved indication [Unknown]
  - Seizure [Recovered/Resolved]
